FAERS Safety Report 8243009-2 (Version None)
Quarter: 2012Q1

REPORT INFORMATION
  Report Type: 
  Country: None (occurrence: None)
  Receive Date: 20120329
  Receipt Date: 20120319
  Transmission Date: 20120608
  Serious: Yes (Hospitalization)
  Sender: FDA-Public Use
  Company Number: LV-JNJFOC-20120310988

PATIENT
  Sex: Female

DRUGS (7)
  1. PALIPERIDONE [Suspect]
     Route: 030
     Dates: start: 20120315
  2. TRUXAL [Concomitant]
     Indication: INSOMNIA
     Dates: start: 20120105
  3. HALOPERIDOL [Concomitant]
     Dates: start: 20120210, end: 20120318
  4. CYCLODOL [Concomitant]
     Indication: EXTRAPYRAMIDAL DISORDER
     Dates: start: 20120105
  5. PALIPERIDONE [Suspect]
     Indication: SCHIZOPHRENIA
     Route: 030
     Dates: start: 20120209
  6. HALOPERIDOL [Concomitant]
     Indication: SCHIZOPHRENIFORM DISORDER
     Dates: start: 20120105, end: 20120209
  7. DIAZEPAM [Concomitant]
     Indication: INSOMNIA
     Dates: start: 20120105, end: 20120318

REACTIONS (1)
  - ANXIETY [None]
